FAERS Safety Report 15120736 (Version 1)
Quarter: 2018Q3

REPORT INFORMATION
  Report Type: Spontaneous
  Country: US (occurrence: US)
  Receive Date: 20180709
  Receipt Date: 20180709
  Transmission Date: 20181010
  Serious: Yes (Other)
  Sender: FDA-Public Use
  Company Number: US-SA-2018SA160839

PATIENT
  Age: 64 Year
  Sex: Female

DRUGS (2)
  1. TOUJEO [Suspect]
     Active Substance: INSULIN GLARGINE
     Dosage: 130 DF, QD
     Route: 058
     Dates: start: 20160502, end: 20161024
  2. LANTUS [Suspect]
     Active Substance: INSULIN GLARGINE
     Dosage: 120 DF, QD
     Route: 065

REACTIONS (3)
  - Blood glucose increased [Unknown]
  - Treatment noncompliance [Unknown]
  - Glycosylated haemoglobin increased [Unknown]
